FAERS Safety Report 25915390 (Version 1)
Quarter: 2025Q4

REPORT INFORMATION
  Report Type: Spontaneous
  Country: EU (occurrence: EU)
  Receive Date: 20251013
  Receipt Date: 20251013
  Transmission Date: 20260118
  Serious: Yes (Other)
  Sender: MYLAN
  Company Number: None

PATIENT
  Age: 69 Year
  Sex: Male
  Weight: 100 kg

DRUGS (26)
  1. VANCOMYCIN [Suspect]
     Active Substance: VANCOMYCIN
     Indication: Endocarditis bacterial
     Dosage: 1.5 GRAM, BID (1.5 G TWICE A DAY)
     Dates: start: 20250805
  2. ARIPIPRAZOLE [Concomitant]
     Active Substance: ARIPIPRAZOLE
     Dosage: UNK
  3. BUPROPION HYDROCHLORIDE [Concomitant]
     Active Substance: BUPROPION HYDROCHLORIDE
     Dosage: UNK
  4. Fobiless [Concomitant]
     Dosage: UNK
  5. ASPIRIN [Concomitant]
     Active Substance: ASPIRIN
     Dosage: UNK
  6. MAGNESIUM ASPARTATE\POTASSIUM ASPARTATE [Concomitant]
     Active Substance: MAGNESIUM ASPARTATE\POTASSIUM ASPARTATE
     Dosage: UNK
  7. Diurex [Concomitant]
     Dosage: UNK
  8. Larofen [Concomitant]
     Dosage: UNK
  9. ACETAMINOPHEN [Concomitant]
     Active Substance: ACETAMINOPHEN
     Dosage: UNK
  10. Tusocalm [Concomitant]
     Dosage: UNK
  11. VENTOLIN [Concomitant]
     Active Substance: ALBUTEROL SULFATE
     Dosage: UNK (100 INHALER CFC-FREE)
  12. METAMIZOLE SODIUM [Concomitant]
     Active Substance: METAMIZOLE SODIUM
     Dosage: UNK (1 G/2 ML  )
  13. Almacor [Concomitant]
     Dosage: UNK
  14. Candesartan atb [Concomitant]
     Dosage: UNK
  15. HEPARIN SODIUM [Concomitant]
     Active Substance: HEPARIN SODIUM
     Dosage: UNK
  16. IMOVANE [Concomitant]
     Active Substance: ZOPICLONE
     Dosage: UNK
  17. Clorura de potasiu [Concomitant]
     Dosage: UNK (BRAUN)
  18. PANTOPRAZOLE SODIUM [Concomitant]
     Active Substance: PANTOPRAZOLE SODIUM
     Dosage: UNK
  19. SINTROM [Concomitant]
     Active Substance: ACENOCOUMAROL
     Dosage: UNK
  20. Bromazepam arena [Concomitant]
     Dosage: UNK
  21. METAMIZOLE [Concomitant]
     Active Substance: METAMIZOLE
     Dosage: UNK
  22. VALPROIC ACID [Concomitant]
     Active Substance: VALPROIC ACID
     Dosage: UNK
  23. MAGNESIUM [Concomitant]
     Active Substance: MAGNESIUM
     Dosage: UNK
  24. Bisotens [Concomitant]
     Dosage: UNK
  25. LOPERAMIDE [Concomitant]
     Active Substance: LOPERAMIDE
     Dosage: UNK
  26. Diosmectita [Concomitant]
     Dosage: UNK

REACTIONS (2)
  - Acute kidney injury [Recovering/Resolving]
  - Blood creatinine increased [Recovering/Resolving]

NARRATIVE: CASE EVENT DATE: 20250828
